FAERS Safety Report 8231206-1 (Version None)
Quarter: 2012Q1

REPORT INFORMATION
  Report Type: 
  Country: None (occurrence: None)
  Receive Date: 20120323
  Receipt Date: 20120323
  Transmission Date: 20120608
  Serious: Yes (Other)
  Sender: FDA-Public Use
  Company Number: None

PATIENT
  Age: 32 Year
  Sex: Male
  Weight: 81.646 kg

DRUGS (1)
  1. PROPECIA [Suspect]
     Indication: ALOPECIA
     Dosage: 1.0 MG
     Route: 048
     Dates: start: 20050530, end: 20111105

REACTIONS (10)
  - SWELLING [None]
  - MEMORY IMPAIRMENT [None]
  - GROIN PAIN [None]
  - ARTHRALGIA [None]
  - ERECTILE DYSFUNCTION [None]
  - SLEEP DISORDER [None]
  - OSTEOARTHRITIS [None]
  - SPONTANEOUS PENILE ERECTION [None]
  - PAIN [None]
  - LIBIDO DECREASED [None]
